FAERS Safety Report 12341091 (Version 1)
Quarter: 2016Q2

REPORT INFORMATION
  Report Type: Spontaneous
  Country: US (occurrence: None)
  Receive Date: 20160505
  Receipt Date: 20160505
  Transmission Date: 20160815
  Serious: Yes (Hospitalization)
  Sender: FDA-Public Use
  Company Number: None

PATIENT
  Age: 85 Year
  Sex: Male
  Weight: 77.4 kg

DRUGS (1)
  1. WARFARIN [Suspect]
     Active Substance: WARFARIN
     Indication: PULMONARY EMBOLISM
     Route: 048
     Dates: start: 19981124

REACTIONS (5)
  - Gastrointestinal haemorrhage [None]
  - Haemoglobin decreased [None]
  - Dizziness postural [None]
  - International normalised ratio increased [None]
  - Fatigue [None]

NARRATIVE: CASE EVENT DATE: 20151130
